FAERS Safety Report 12478360 (Version 3)
Quarter: 2017Q1

REPORT INFORMATION
  Report Type: Report from Study
  Country: US (occurrence: US)
  Receive Date: 20160618
  Receipt Date: 20170224
  Transmission Date: 20170428
  Serious: Yes (Hospitalization, Other)
  Sender: FDA-Public Use
  Company Number: US-ASTRAZENECA-2016SE28558

PATIENT
  Age: 992 Month
  Sex: Female
  Weight: 35.4 kg

DRUGS (33)
  1. CRESTOR [Suspect]
     Active Substance: ROSUVASTATIN CALCIUM
     Indication: BLOOD CHOLESTEROL ABNORMAL
     Route: 048
     Dates: start: 2016
  2. MORPHINE [Concomitant]
     Active Substance: MORPHINE
     Indication: BACK PAIN
  3. IRESSA [Suspect]
     Active Substance: GEFITINIB
     Indication: LUNG NEOPLASM MALIGNANT
     Route: 048
     Dates: start: 20160302
  4. CRESTOR [Suspect]
     Active Substance: ROSUVASTATIN CALCIUM
     Indication: BLOOD CHOLESTEROL ABNORMAL
     Route: 048
     Dates: start: 2016
  5. AZOPT [Concomitant]
     Active Substance: BRINZOLAMIDE
  6. OXYCODONE [Concomitant]
     Active Substance: OXYCODONE
     Indication: OSTEOPOROSIS
     Dosage: 325 MG EVERY 6 HOURS AS REQUIRED
     Route: 048
  7. DIAZEPAM. [Concomitant]
     Active Substance: DIAZEPAM
     Indication: ANXIETY
     Route: 048
  8. DORZOLAMIDE [Concomitant]
     Active Substance: DORZOLAMIDE
  9. MULTIVITAMIN [Concomitant]
     Active Substance: VITAMINS
     Indication: SUPPLEMENTATION THERAPY
     Dosage: DAILY
  10. PROTONIX [Concomitant]
     Active Substance: PANTOPRAZOLE SODIUM
     Indication: GASTROOESOPHAGEAL REFLUX DISEASE
  11. LEVOTHYROXINE. [Concomitant]
     Active Substance: LEVOTHYROXINE
     Indication: THYROID DISORDER
     Route: 048
     Dates: start: 2016
  12. OXYCODONE [Concomitant]
     Active Substance: OXYCODONE
     Indication: OSTEOPOROSIS
     Dosage: 325 MG EVERY 6 HOURS AS REQUIRED
     Route: 048
  13. OXYCODONE [Concomitant]
     Active Substance: OXYCODONE
     Indication: OSTEOPOROSIS
     Dosage: 325 MG EVERY 6 HOURS AS REQUIRED
     Route: 048
  14. LEVOTHYROXINE. [Concomitant]
     Active Substance: LEVOTHYROXINE
     Indication: THYROID DISORDER
     Route: 048
     Dates: start: 2016
  15. DIAZEPAM. [Concomitant]
     Active Substance: DIAZEPAM
     Indication: ANXIETY
     Route: 048
  16. DIAZEPAM. [Concomitant]
     Active Substance: DIAZEPAM
     Indication: ANXIETY
     Route: 048
  17. LUMIGAN [Concomitant]
     Active Substance: BIMATOPROST
  18. METOPROLOL. [Suspect]
     Active Substance: METOPROLOL
     Indication: BLOOD PRESSURE ABNORMAL
     Route: 048
     Dates: start: 2016
  19. CRESTOR [Suspect]
     Active Substance: ROSUVASTATIN CALCIUM
     Indication: BLOOD CHOLESTEROL ABNORMAL
     Route: 048
     Dates: start: 2016
  20. LEVOTHYROXINE. [Concomitant]
     Active Substance: LEVOTHYROXINE
     Indication: THYROID DISORDER
     Route: 048
     Dates: start: 2016
  21. DIAZEPAM. [Concomitant]
     Active Substance: DIAZEPAM
     Indication: ANXIETY
     Route: 048
  22. IRESSA [Suspect]
     Active Substance: GEFITINIB
     Indication: LUNG NEOPLASM MALIGNANT
     Route: 048
  23. RANEXA [Concomitant]
     Active Substance: RANOLAZINE
     Indication: PROPHYLAXIS
  24. RANEXA [Concomitant]
     Active Substance: RANOLAZINE
     Indication: PROPHYLAXIS
  25. PHENERGAN [Concomitant]
     Active Substance: PROMETHAZINE HYDROCHLORIDE
  26. LEVOTHYROXINE. [Concomitant]
     Active Substance: LEVOTHYROXINE
     Indication: THYROID DISORDER
     Route: 048
     Dates: start: 2016
  27. ZOLPIDEM [Concomitant]
     Active Substance: ZOLPIDEM\ZOLPIDEM TARTRATE
  28. ZITHROMAX [Concomitant]
     Active Substance: AZITHROMYCIN DIHYDRATE
  29. DIFLUCAN [Concomitant]
     Active Substance: FLUCONAZOLE
  30. MULTIVITAMIN [Concomitant]
     Active Substance: VITAMINS
     Indication: SUPPLEMENTATION THERAPY
     Dosage: DAILY
  31. METOPROLOL. [Suspect]
     Active Substance: METOPROLOL
     Indication: BLOOD PRESSURE ABNORMAL
     Route: 048
     Dates: start: 2016
  32. CRESTOR [Suspect]
     Active Substance: ROSUVASTATIN CALCIUM
     Indication: BLOOD CHOLESTEROL ABNORMAL
     Route: 048
     Dates: start: 2016
  33. OXYCODONE [Concomitant]
     Active Substance: OXYCODONE
     Indication: OSTEOPOROSIS
     Dosage: 325 MG EVERY 6 HOURS AS REQUIRED
     Route: 048

REACTIONS (52)
  - Vulvovaginal discomfort [Unknown]
  - Nail disorder [Unknown]
  - Pyrexia [Unknown]
  - Rash pruritic [Recovered/Resolved]
  - Acne pustular [Recovered/Resolved]
  - Appetite disorder [Unknown]
  - Proctalgia [Unknown]
  - Abdominal discomfort [Unknown]
  - Hypertension [Unknown]
  - Mouth ulceration [Not Recovered/Not Resolved]
  - Fatigue [Unknown]
  - Diarrhoea [Not Recovered/Not Resolved]
  - Cerebrovascular accident [Unknown]
  - Glaucoma [Not Recovered/Not Resolved]
  - Hypoaesthesia [Unknown]
  - Sputum discoloured [Recovered/Resolved]
  - Dysgeusia [Unknown]
  - Pain [Unknown]
  - Dry skin [Unknown]
  - Swollen tongue [Not Recovered/Not Resolved]
  - Tinnitus [Unknown]
  - Migraine [Unknown]
  - Cardiac disorder [Unknown]
  - Cataract [Unknown]
  - Alopecia [Unknown]
  - Body temperature increased [Unknown]
  - Lip blister [Unknown]
  - Scab [Not Recovered/Not Resolved]
  - Back pain [Unknown]
  - Feeling abnormal [Unknown]
  - Skin exfoliation [Unknown]
  - Nausea [Unknown]
  - Coronary artery occlusion [Unknown]
  - Candida infection [Unknown]
  - Weight increased [Unknown]
  - Chills [Unknown]
  - Vision blurred [Unknown]
  - Pneumonia [Recovered/Resolved]
  - Eye disorder [Unknown]
  - Headache [Unknown]
  - Paraesthesia [Unknown]
  - Chest discomfort [Unknown]
  - Thyroid disorder [Unknown]
  - Arteritis [Unknown]
  - Cough [Recovered/Resolved]
  - Generalised erythema [Unknown]
  - Off label use [Not Recovered/Not Resolved]
  - Skin burning sensation [Unknown]
  - Dyspnoea [Not Recovered/Not Resolved]
  - Blood cholesterol increased [Unknown]
  - Skin exfoliation [Not Recovered/Not Resolved]
  - Blister [Not Recovered/Not Resolved]

NARRATIVE: CASE EVENT DATE: 201603
